FAERS Safety Report 7332525-3 (Version None)
Quarter: 2011Q1

REPORT INFORMATION
  Report Type: 
  Country: None (occurrence: None)
  Receive Date: 20110228
  Receipt Date: 20110228
  Transmission Date: 20110831
  Serious: Yes (Life-Threatening)
  Sender: FDA-Public Use
  Company Number: None

PATIENT
  Age: 58 Year
  Sex: Male

DRUGS (8)
  1. METOCLOPRAMIDE HCL [Concomitant]
  2. HYDROCODONE/ACETAMINOPHEN [Concomitant]
  3. REGULAR INSULIN [Concomitant]
  4. ONDANSETRON [Concomitant]
  5. FAMOTIDINE [Concomitant]
  6. INTERFERON ALFA-2B 50 MILLION IU SCHERING -INTRON A- [Suspect]
     Indication: METASTATIC MALIGNANT MELANOMA
     Dosage: 40 MILLION UNITS DAILY IV BOLUS
     Route: 040
     Dates: start: 20110207, end: 20110222
  7. DIPHENHYDRAMINE [Concomitant]
  8. METFORMIN [Concomitant]

REACTIONS (1)
  - CEREBROVASCULAR ACCIDENT [None]
